FAERS Safety Report 15849784 (Version 1)
Quarter: 2019Q1

REPORT INFORMATION
  Report Type: Spontaneous
  Country: GB (occurrence: US)
  Receive Date: 20190121
  Receipt Date: 20190121
  Transmission Date: 20190417
  Serious: Yes (Life-Threatening, Hospitalization, Other)
  Sender: FDA-Public Use
  Company Number: GB-MYLANLABS-2019M1005036

PATIENT
  Age: 29 Year
  Sex: Female

DRUGS (7)
  1. METOPROLOL. [Suspect]
     Active Substance: METOPROLOL
     Indication: CONGESTIVE CARDIOMYOPATHY
     Dosage: UNK
     Route: 065
  2. LISINOPRIL. [Concomitant]
     Active Substance: LISINOPRIL
     Indication: CONGESTIVE CARDIOMYOPATHY
     Dosage: UNK
  3. SPIRONOLACTONE. [Concomitant]
     Active Substance: SPIRONOLACTONE
     Indication: CONGESTIVE CARDIOMYOPATHY
     Dosage: UNK
  4. IVABRADINE [Interacting]
     Active Substance: IVABRADINE
     Indication: ANGINA PECTORIS
  5. FUROSEMIDE. [Interacting]
     Active Substance: FUROSEMIDE
     Indication: CONGESTIVE CARDIOMYOPATHY
     Dosage: UNK
     Route: 065
  6. IVABRADINE [Interacting]
     Active Substance: IVABRADINE
     Indication: CONGESTIVE CARDIOMYOPATHY
     Dosage: UNK
     Route: 065
  7. IVABRADINE [Interacting]
     Active Substance: IVABRADINE
     Indication: SINUS BRADYCARDIA

REACTIONS (10)
  - Cardio-respiratory arrest [Unknown]
  - Ventricular tachycardia [Unknown]
  - Chest discomfort [Unknown]
  - Dyspnoea [Unknown]
  - Electrocardiogram QT prolonged [Unknown]
  - Ventricular fibrillation [Unknown]
  - Drug interaction [Unknown]
  - Syncope [Unknown]
  - Torsade de pointes [Unknown]
  - Myocardial necrosis marker increased [Unknown]
